FAERS Safety Report 8244068-3 (Version None)
Quarter: 2012Q1

REPORT INFORMATION
  Report Type: 
  Country: None (occurrence: None)
  Receive Date: 20120329
  Receipt Date: 20120316
  Transmission Date: 20120608
  Serious: Yes (Other)
  Sender: FDA-Public Use
  Company Number: US-ELI_LILLY_AND_COMPANY-US201203005654

PATIENT
  Sex: Female

DRUGS (5)
  1. LIPITOR [Concomitant]
  2. CYMBALTA [Suspect]
     Dosage: 60 MG, QD
  3. CYMBALTA [Suspect]
     Dosage: 60 MG, QD
  4. CYMBALTA [Suspect]
     Indication: DIABETIC NEUROPATHY
     Dosage: 30 MG, QD
  5. AVANDIA [Concomitant]

REACTIONS (10)
  - EAR INFECTION [None]
  - DRUG EFFECT DECREASED [None]
  - TINNITUS [None]
  - CARDIAC FAILURE CONGESTIVE [None]
  - FLUID RETENTION [None]
  - INFLUENZA [None]
  - OROPHARYNGEAL BLISTERING [None]
  - SINUS HEADACHE [None]
  - SINUSITIS [None]
  - DRUG INEFFECTIVE [None]
